FAERS Safety Report 23791585 (Version 4)
Quarter: 2025Q2

REPORT INFORMATION
  Report Type: Other
  Country: GB (occurrence: GB)
  Receive Date: 20240429
  Receipt Date: 20250404
  Transmission Date: 20250716
  Serious: Yes (Hospitalization, Other)
  Sender: GLENMARK
  Company Number: GB-MYLANLABS-2024M1028947

PATIENT
  Age: 62 Year
  Sex: Female
  Weight: 106 kg

DRUGS (34)
  1. EZETIMIBE [Suspect]
     Active Substance: EZETIMIBE
     Indication: Product used for unknown indication
     Dosage: 1 DOSAGE FORM, OD (EACH MORNING 7X10MG IN MDS)  (NAME OF HOLDER/APPLICANT NOVARTIS SECTOR: PHARMA)
     Route: 048
  2. AMISULPRIDE [Suspect]
     Active Substance: AMISULPRIDE
     Indication: Product used for unknown indication
     Dosage: 1 DOSAGE FORM, OD  (1 DOSAGE FORM, QD (EACH MORNING 7X200MG IN MDS))
     Route: 048
  3. AMISULPRIDE [Suspect]
     Active Substance: AMISULPRIDE
     Dosage: 1 DOSAGE FORM, OD (EACH MORNING 7X200MG IN MDS) NOVARTIS SECTOR: PHARMA
     Route: 048
  4. ASPIRIN [Suspect]
     Active Substance: ASPIRIN
     Indication: Product used for unknown indication
     Dosage: 1 DOSAGE FORM, OD (EACH MORNING 7X75MG IN MDS)
     Route: 048
  5. ASPIRIN [Suspect]
     Active Substance: ASPIRIN
     Dosage: 1 DOSAGE FORM, OD (EACH MORNING 7X75MG IN MDS)
     Route: 048
  6. BUSPIRONE [Suspect]
     Active Substance: BUSPIRONE HYDROCHLORIDE
     Indication: Product used for unknown indication
     Dosage: 2 DOSAGE FORM, QD (1 DOSAGE FORM, BID (POS))
     Route: 048
  7. CLOZAPINE [Suspect]
     Active Substance: CLOZAPINE
     Indication: Schizophrenia
     Dosage: 2 DOSAGE FORM, QD (AT BEDTIME 14X25MG IN MDS)
     Route: 048
  8. CLOZAPINE [Suspect]
     Active Substance: CLOZAPINE
     Dosage: 3 DOSAGE FORM, QD (EACH MORNING 21X25MG IN MDS)
     Route: 048
  9. CLOZAPINE [Suspect]
     Active Substance: CLOZAPINE
     Route: 048
     Dates: start: 20150414
  10. CLOZAPINE [Suspect]
     Active Substance: CLOZAPINE
     Dosage: 1 DOSAGE FORM, QD (AT BEDTIME 7X100MG IN MDS)
     Route: 048
  11. FUROSEMIDE [Suspect]
     Active Substance: FUROSEMIDE
     Indication: Product used for unknown indication
     Dosage: 1 DOSAGE FORM, QD (EACH MORNING 7X20MG IN MDS)
     Route: 048
  12. FUROSEMIDE [Suspect]
     Active Substance: FUROSEMIDE
     Dosage: 1 DOSAGE FORM, QD (EACH MORNING 7X20MG IN MDS)  (NOVARTIS SECTOR: PHARMA)
     Route: 048
  13. IVABRADINE [Suspect]
     Active Substance: IVABRADINE
     Indication: Product used for unknown indication
     Dosage: 2 DOSAGE FORM, OD (1 DOSAGE FORM, BID (POS))
     Route: 048
  14. LANSOPRAZOLE [Suspect]
     Active Substance: LANSOPRAZOLE
     Indication: Product used for unknown indication
     Dosage: 1 DOSAGE FORM, QD (EACH MORNING 7X30MG IN MDS)
     Route: 048
  15. LANTUS [Suspect]
     Active Substance: INSULIN GLARGINE
     Indication: Product used for unknown indication
     Dosage: UNK, QD (25UNITS ONCE DAILY WITH BREAKFAST WARD STOCK LABELLED + 2X3ML PENS)
     Route: 058
  16. POLYETHYLENE GLYCOL 3350\POTASSIUM CHLORIDE\SODIUM BICARBONATE\SODIUM [Suspect]
     Active Substance: POLYETHYLENE GLYCOL 3350\POTASSIUM CHLORIDE\SODIUM BICARBONATE\SODIUM CHLORIDE
     Indication: Constipation
     Dosage: 1 DOSAGE FORM, OD (ONE SACHET ONCE A DAY WHEN  REQUIRED FOR CONSTIPATION 20 SACHETS SUPPLIED)
     Route: 048
  17. POLYETHYLENE GLYCOL 3350\POTASSIUM CHLORIDE\SODIUM BICARBONATE\SODIUM [Suspect]
     Active Substance: POLYETHYLENE GLYCOL 3350\POTASSIUM CHLORIDE\SODIUM BICARBONATE\SODIUM CHLORIDE
     Dosage: 1 DOSAGE FORM, OD (ONE SACHET ONCE A DAY WHEN  REQUIRED FOR CONSTIPATION 20 SACHETS SUPPLIED)
     Route: 048
  18. METHENAMINE [Suspect]
     Active Substance: METHENAMINE
     Indication: Product used for unknown indication
     Dosage: 1 DOSAGE FORM, QD (IN THE MORNING) 14X1GRAM IN MDS
     Route: 048
  19. METHENAMINE [Suspect]
     Active Substance: METHENAMINE
     Dosage: 1 DOSAGE FORM, QD (AT BEDTIME) 14X1GRAM IN MDS
     Route: 048
  20. ACETAMINOPHEN [Suspect]
     Active Substance: ACETAMINOPHEN
     Indication: Product used for unknown indication
     Dosage: 8 DOSAGE FORM, QD (2 DOSAGE FORM, QID (FOUR TIMES A DAY WHEN REQUIRED 32X500MG, BLADDER IRRIGATION))
     Route: 048
  21. CLOZARIL [Suspect]
     Active Substance: CLOZAPINE
     Indication: Schizophrenia
     Dosage: 1 DOSAGE FORM, OD  (AT BEDTIME 7X100MG IN MDS)
     Route: 048
     Dates: start: 20150414
  22. CLOZARIL [Suspect]
     Active Substance: CLOZAPINE
     Dosage: 3 DOSAGE FORM, OD  (EACH MORNING 21X25MG IN MDS)
     Route: 048
  23. CLOZARIL [Suspect]
     Active Substance: CLOZAPINE
     Dosage: 2 DOSAGE FORM, OD ((AT BEDTIME 14X25MG IN MDS))
     Route: 048
  24. METHENAMINE HIPPURATE [Suspect]
     Active Substance: METHENAMINE HIPPURATE
     Indication: Product used for unknown indication
     Dosage: 1 DOSAGE FORM, OD (IN THE MORNING) 14X1GRAM IN MDS
     Route: 048
  25. METHENAMINE HIPPURATE [Suspect]
     Active Substance: METHENAMINE HIPPURATE
     Dosage: 1 DOSAGE FORM, OD (AT BEDTIME) 14X1GRAM IN MDS
     Route: 048
  26. LANSOPRAZOLE [Suspect]
     Active Substance: LANSOPRAZOLE
     Indication: Product used for unknown indication
     Dosage: 1 DOSAGE FORM, OD (EACH MORNING 7X30MG IN MDS)
     Route: 048
  27. LANTUS SOLOSTAR [Suspect]
     Active Substance: INSULIN GLARGINE
     Indication: Product used for unknown indication
     Dosage: UNK UNK, OD  (25UNITS ONCE DAILY WITH BREAKFAST WARD STOCK LABELLED + 2X3ML PENS)
     Route: 058
  28. ACETAMINOPHEN [Suspect]
     Active Substance: ACETAMINOPHEN
     Indication: Product used for unknown indication
     Dosage: 8 DOSAGE FORM, QD (8 DOSAGE FORM, QD (2 DOSAGE FORM, QID (FOUR TIMES A DAY WHEN REQUIRED 32X500MG, B
     Route: 048
  29. ACETAMINOPHEN [Suspect]
     Active Substance: ACETAMINOPHEN
     Dosage: 8 DOSAGE FORM, QD (2 DOSAGE FORM, QID ((FOUR TIMES A DAY WHEN REQUIRED 32X500MG) (NOVARTIS SECTOR: P
     Route: 048
  30. IVABRADINE [Suspect]
     Active Substance: IVABRADINE
     Indication: Product used for unknown indication
     Dosage: 2 DOSAGE FORM, QD (1 DOSAGE FORM, BID (POS))
     Route: 048
  31. CLOZARIL [Suspect]
     Active Substance: CLOZAPINE
     Indication: Schizophrenia
     Route: 048
     Dates: start: 20150414
  32. CLOZARIL [Suspect]
     Active Substance: CLOZAPINE
     Dosage: 2 DOSAGE FORM, QD (AT BEDTIME 14X25MG IN MDS)
     Route: 048
  33. CLOZARIL [Suspect]
     Active Substance: CLOZAPINE
     Dosage: 3 DOSAGE FORM, QD ( (EACH MORNING 21X25MG IN MDS))
     Route: 048
  34. CLOZARIL [Suspect]
     Active Substance: CLOZAPINE
     Dosage: 1 DOSAGE FORM, QD (1 DOSAGE FORM, QD (AT BEDTIME 7X100MG IN MDS)
     Route: 048

REACTIONS (8)
  - Endocarditis enterococcal [Recovered/Resolved]
  - Cardiac failure [Unknown]
  - Aortic valve replacement [Unknown]
  - Mitral valve replacement [Unknown]
  - Emotional distress [Unknown]
  - Hypotension [Unknown]
  - Respiratory syncytial virus test positive [Unknown]
  - Fall [Unknown]

NARRATIVE: CASE EVENT DATE: 20240101
